FAERS Safety Report 7269484-8 (Version None)
Quarter: 2011Q1

REPORT INFORMATION
  Report Type: 
  Country: None (occurrence: None)
  Receive Date: 20110202
  Receipt Date: 20101124
  Transmission Date: 20110831
  Serious: Yes (Hospitalization)
  Sender: FDA-Public Use
  Company Number: AU-BAYER-201047422GPV

PATIENT
  Age: 21 Year
  Sex: Female

DRUGS (1)
  1. YASMIN [Suspect]
     Indication: CONTRACEPTION
     Route: 048

REACTIONS (8)
  - APHASIA [None]
  - SYNCOPE [None]
  - DYSPNOEA [None]
  - HYPOAESTHESIA [None]
  - BLOOD PHOSPHORUS DECREASED [None]
  - PARAESTHESIA [None]
  - DISORIENTATION [None]
  - ASTHENIA [None]
